FAERS Safety Report 21496627 (Version 1)
Quarter: 2022Q4

REPORT INFORMATION
  Report Type: Spontaneous
  Country: FR (occurrence: FR)
  Receive Date: 20221022
  Receipt Date: 20221022
  Transmission Date: 20230113
  Serious: Yes (Hospitalization)
  Sender: FDA-Public Use
  Company Number: None

PATIENT
  Age: 65 Year
  Sex: Female

DRUGS (9)
  1. LAMOTRIGINE [Suspect]
     Active Substance: LAMOTRIGINE
     Indication: Schizophrenia
     Dosage: UNIT DOSE : 50 MG, FREQUENCY TIME : 12 HOURS
     Route: 065
  2. ATORVASTATIN [Suspect]
     Active Substance: ATORVASTATIN
     Indication: Product used for unknown indication
     Dosage: THERAPY START DATE  : NOT ASKED, UNIT DOSE : 10 MG, FREQUENCY TIME : 1 DAYS
     Route: 065
     Dates: end: 20220909
  3. CLOZAPINE [Suspect]
     Active Substance: CLOZAPINE
     Indication: Schizophrenia
     Dosage: THERAPY END DATE  : NOT ASKED, UNIT DOSE : 100 MG, FREQUENCY TIME : 12 HOURS
     Route: 065
     Dates: start: 2005
  4. AMLODIPINE [Suspect]
     Active Substance: AMLODIPINE BESYLATE
     Indication: Product used for unknown indication
     Dosage: THERAPY START DATE  : NOT ASKED, UNIT DOSE : 5 MG, FREQUENCY TIME : 1 DAYS
     Route: 065
     Dates: end: 20220909
  5. XARELTO [Suspect]
     Active Substance: RIVAROXABAN
     Indication: Pulmonary embolism
     Dosage: THERAPY START DATE  : NOT ASKED, UNIT DOSE : 10 MG, FREQUENCY TIME : 1 DAYS
     Route: 065
     Dates: end: 202209
  6. ANAFRANIL [Suspect]
     Active Substance: CLOMIPRAMINE HYDROCHLORIDE
     Indication: Schizophrenia
     Dosage: UNIT DOSE : 10 MG,FREQUENCY TIME : 1 DAYS, THERAPY DURATION : 9 YEARS
     Route: 065
     Dates: start: 2013, end: 20220915
  7. LORAZEPAM [Suspect]
     Active Substance: LORAZEPAM
     Indication: Schizophrenia
     Dosage: UNIT DOSE : 2 MG, FREQUENCY TIME : 1 DAYS
     Route: 065
  8. VALIUM [Suspect]
     Active Substance: DIAZEPAM
     Indication: Schizophrenia
     Dosage: THERAPY START DATE  : NOT ASKED,UNIT DOSE : 0.5 ML, FREQUENCY TIME : 12 HOURS
     Route: 065
     Dates: end: 20220909
  9. MIDODRINE HYDROCHLORIDE [Suspect]
     Active Substance: MIDODRINE HYDROCHLORIDE
     Indication: Orthostatic hypotension
     Dosage: UNIT DOSE : 2.5  MG,FREQUENCY TIME : 1 DAYS
     Route: 065

REACTIONS (1)
  - Acute kidney injury [Not Recovered/Not Resolved]

NARRATIVE: CASE EVENT DATE: 20220908
